FAERS Safety Report 19722979 (Version 1)
Quarter: 2021Q3

REPORT INFORMATION
  Report Type: Report from Study
  Country: US (occurrence: US)
  Receive Date: 20210819
  Receipt Date: 20210819
  Transmission Date: 20211014
  Serious: Yes (Other)
  Sender: FDA-Public Use
  Company Number: US-BIOVITRUM-2021US7379

PATIENT
  Age: 5 Year
  Sex: Male

DRUGS (2)
  1. KINERET [Suspect]
     Active Substance: ANAKINRA
     Route: 058
     Dates: start: 20190626
  2. KINERET [Suspect]
     Active Substance: ANAKINRA
     Indication: PYREXIA

REACTIONS (4)
  - Lyme disease [Unknown]
  - Product dose omission issue [Not Recovered/Not Resolved]
  - Product storage error [Unknown]
  - Off label use [Not Recovered/Not Resolved]

NARRATIVE: CASE EVENT DATE: 20190626
